FAERS Safety Report 4657964-0 (Version None)
Quarter: 2005Q2

REPORT INFORMATION
  Report Type: 
  Country: None (occurrence: None)
  Receive Date: 20050510
  Receipt Date: 20050503
  Transmission Date: 20051028
  Serious: Yes (Hospitalization)
  Sender: FDA-Public Use
  Company Number: 2005SE02666

PATIENT
  Age: 80 Year
  Sex: Female

DRUGS (5)
  1. BLOPRESS TABLETS 4 [Suspect]
     Indication: HYPERTENSION
     Route: 048
     Dates: start: 20050410, end: 20050418
  2. ALPHA GLUCOSIDASE INHIBITORS [Suspect]
     Route: 048
  3. SULFONAMIDES, UREA DERIVATIVES [Suspect]
     Route: 048
  4. DIURETICS [Suspect]
     Route: 065
  5. FLUTAMIDE [Concomitant]
     Route: 048

REACTIONS (3)
  - BLOOD PRESSURE DECREASED [None]
  - RENAL DISORDER [None]
  - RENAL FAILURE [None]
